FAERS Safety Report 14035222 (Version 5)
Quarter: 2018Q2

REPORT INFORMATION
  Report Type: Spontaneous
  Country: US (occurrence: US)
  Receive Date: 20171003
  Receipt Date: 20180621
  Transmission Date: 20180711
  Serious: No
  Sender: FDA-Public Use
  Company Number: US-PFIZER INC-2017424537

PATIENT
  Age: 57 Year
  Sex: Female

DRUGS (2)
  1. SUTENT [Suspect]
     Active Substance: SUNITINIB MALATE
     Indication: NEOPLASM
     Dosage: 37.5 MG, DAILY (TAKE 1 CAPSULE BY MOUTH)
     Route: 048
     Dates: start: 201709, end: 2017
  2. SUTENT [Suspect]
     Active Substance: SUNITINIB MALATE
     Indication: IRON DEFICIENCY ANAEMIA
     Dosage: 25 MG, DAILY
     Route: 048
     Dates: start: 201709

REACTIONS (6)
  - Dry mouth [Unknown]
  - Pain [Unknown]
  - Fatigue [Unknown]
  - Rash [Unknown]
  - Oral pain [Unknown]
  - Palmar-plantar erythrodysaesthesia syndrome [Unknown]

NARRATIVE: CASE EVENT DATE: 2017
